FAERS Safety Report 8833850 (Version 2)
Quarter: 2012Q4

REPORT INFORMATION
  Report Type: 
  Country: IL (occurrence: IL)
  Receive Date: 20121011
  Receipt Date: 20121020
  Transmission Date: 20130627
  Serious: Yes (Death)
  Sender: FDA-Public Use
  Company Number: IL-009507513-1210ISR003861

PATIENT
  Age: 82 Year
  Sex: Female

DRUGS (2)
  1. SAPHRIS [Suspect]
     Dosage: UNK
     Dates: end: 20120918
  2. AMISULPRIDE [Concomitant]
     Dosage: UNK
     Dates: start: 201209, end: 201209

REACTIONS (1)
  - Death [Fatal]
